FAERS Safety Report 10244447 (Version 1)
Quarter: 2014Q2

REPORT INFORMATION
  Report Type: Spontaneous
  Country: IT (occurrence: None)
  Receive Date: 20140616
  Receipt Date: 20140616
  Transmission Date: 20141212
  Serious: Yes (Other)
  Sender: FDA-Public Use
  Company Number: 2014AP003342

PATIENT
  Age: 71 Year
  Sex: Male

DRUGS (1)
  1. ALENDRONATE [Suspect]
     Indication: RHEUMATOID ARTHRITIS
     Dosage: Q.WK
     Route: 048

REACTIONS (1)
  - Osteonecrosis of jaw [None]
